FAERS Safety Report 22109979 (Version 1)
Quarter: 2023Q1

REPORT INFORMATION
  Report Type: Report from Study
  Country: US (occurrence: US)
  Receive Date: 20230317
  Receipt Date: 20230317
  Transmission Date: 20230417
  Serious: Yes (Other)
  Sender: FDA-Public Use
  Company Number: US-BAYER-2023A027257

PATIENT
  Age: 77 Year
  Sex: Female

DRUGS (12)
  1. STIVARGA [Suspect]
     Active Substance: REGORAFENIB
     Indication: Neoplasm malignant
     Dosage: 160 MG, QD ONCE DAILY FOR 21 DAYS ON AND 7 DAYS OFF
     Route: 048
     Dates: start: 20230222
  2. STIVARGA [Suspect]
     Active Substance: REGORAFENIB
     Indication: Gastrointestinal stromal tumour
  3. TYLENOL [Concomitant]
     Active Substance: ACETAMINOPHEN
  4. AMOXICILLIN [Concomitant]
     Active Substance: AMOXICILLIN
     Dosage: UNK
  5. ACETAMINOPHEN\HYDROCODONE [Concomitant]
     Active Substance: ACETAMINOPHEN\HYDROCODONE
     Dosage: UNK
  6. SUMATRIPTAN SUCCINATE [Concomitant]
     Active Substance: SUMATRIPTAN SUCCINATE
     Dosage: UNK
  7. CHLORHEXIDINE GLUCONATE [Concomitant]
     Active Substance: CHLORHEXIDINE GLUCONATE
     Dosage: UNK
  8. SUNITINIB MALATE [Concomitant]
     Active Substance: SUNITINIB MALATE
     Dosage: UNK
  9. CITRACAL + D3 [Concomitant]
     Dosage: UNK
  10. MIRALAX [Concomitant]
     Active Substance: POLYETHYLENE GLYCOL 3350
     Dosage: UNK
  11. VITAMINS NOS [Concomitant]
     Active Substance: VITAMINS
     Dosage: UNK
  12. LAXATIVE STOOL SOFTENER WITH SENNA [Concomitant]

REACTIONS (24)
  - Peripheral swelling [Not Recovered/Not Resolved]
  - Oral mucosal blistering [Unknown]
  - Feeding disorder [Unknown]
  - Inflammation [Unknown]
  - Rash erythematous [Not Recovered/Not Resolved]
  - Abdominal pain lower [Not Recovered/Not Resolved]
  - Oropharyngeal pain [Unknown]
  - Diarrhoea [Unknown]
  - Fatigue [Unknown]
  - Dysphonia [Unknown]
  - Constipation [Unknown]
  - Nasal dryness [Unknown]
  - Epistaxis [None]
  - Paraesthesia [Unknown]
  - Abdominal discomfort [Unknown]
  - Back pain [Unknown]
  - Pain in extremity [Unknown]
  - Discomfort [Unknown]
  - Retching [Not Recovered/Not Resolved]
  - Chills [Not Recovered/Not Resolved]
  - Pyrexia [Not Recovered/Not Resolved]
  - Frequent bowel movements [Not Recovered/Not Resolved]
  - Pain [None]
  - Rash [None]
